FAERS Safety Report 11879360 (Version 1)
Quarter: 2015Q4

REPORT INFORMATION
  Report Type: Spontaneous
  Country: US (occurrence: US)
  Receive Date: 20151230
  Receipt Date: 20151230
  Transmission Date: 20160305
  Serious: Yes (Hospitalization)
  Sender: FDA-Public Use
  Company Number: US-TEVA-620558USA

PATIENT
  Age: 55 Year
  Sex: Male

DRUGS (1)
  1. PROAIR HFA [Suspect]
     Active Substance: ALBUTEROL SULFATE
     Route: 055

REACTIONS (1)
  - Malaise [Unknown]

NARRATIVE: CASE EVENT DATE: 201507
